FAERS Safety Report 14938886 (Version 1)
Quarter: 2018Q2

REPORT INFORMATION
  Report Type: Spontaneous
  Country: JP (occurrence: JP)
  Receive Date: 20180525
  Receipt Date: 20180525
  Transmission Date: 20180711
  Serious: Yes (Death)
  Sender: FDA-Public Use
  Company Number: PHBS1999JP02122

PATIENT
  Age: 12 Year
  Sex: Female

DRUGS (2)
  1. SANDIMMUN (CICLOSPORIN) INFUSION [Suspect]
     Active Substance: CYCLOSPORINE
     Dosage: UNK
     Route: 048
     Dates: start: 19970327, end: 19990116
  2. SANDIMMUN (CICLOSPORIN) INFUSION [Suspect]
     Active Substance: CYCLOSPORINE
     Indication: NEPHROTIC SYNDROME
     Dosage: 200 MG, QD
     Route: 048
     Dates: start: 19970327, end: 19990116

REACTIONS (3)
  - Acute abdomen [Unknown]
  - Ileus [Fatal]
  - Enteritis [Unknown]

NARRATIVE: CASE EVENT DATE: 19990117
